FAERS Safety Report 9997243 (Version 1)
Quarter: 2014Q1

REPORT INFORMATION
  Report Type: Spontaneous
  Country: US (occurrence: US)
  Receive Date: 20140311
  Receipt Date: 20140311
  Transmission Date: 20141002
  Serious: No
  Sender: FDA-Public Use
  Company Number: US-GLAXOSMITHKLINE-A1025306A

PATIENT
  Age: 45 Year
  Sex: Female

DRUGS (1)
  1. NICORETTE (RX) [Suspect]
     Indication: EX-TOBACCO USER

REACTIONS (3)
  - Abdominal discomfort [Recovered/Resolved]
  - Tension [Recovered/Resolved]
  - Drug administration error [Unknown]
